FAERS Safety Report 4343555-8 (Version None)
Quarter: 2004Q2

REPORT INFORMATION
  Report Type: 
  Country: None (occurrence: None)
  Receive Date: 20040419
  Receipt Date: 20040408
  Transmission Date: 20050107
  Serious: Yes (Death)
  Sender: FDA-Public Use
  Company Number: US-JNJFOC-20040402033

PATIENT
  Age: 61 Year
  Sex: Female

DRUGS (12)
  1. DURAGESIC [Suspect]
     Indication: PAIN
     Dosage: SEE IMAGE
     Route: 062
     Dates: end: 20040401
  2. DURAGESIC [Suspect]
     Indication: PAIN
     Dosage: SEE IMAGE
     Route: 062
     Dates: start: 20031001
  3. DURAGESIC [Suspect]
  4. PREVACID [Concomitant]
  5. LARAGERPAN (LORAZEPAM) [Concomitant]
  6. COLONIDE (CLONIDINE) [Concomitant]
  7. CYCLOBENZAPR (CYCLOBENZAPRINE) [Concomitant]
  8. LEXIPRO (SSRI) [Concomitant]
  9. TREMANIN (ATENOLOL) [Concomitant]
  10. NEURONTIN [Concomitant]
  11. COUGH MEDICINE W/CODEINE (COUGH AND COLD PREPARATIONS) [Concomitant]
  12. CORTANE (ALL OTHER THERAPEUTIC PRODUCTS) [Concomitant]

REACTIONS (2)
  - BRONCHITIS [None]
  - INCOHERENT [None]
